FAERS Safety Report 9190984 (Version 1)
Quarter: 2013Q1

REPORT INFORMATION
  Report Type: Report from Study
  Country: US (occurrence: US)
  Receive Date: 20130326
  Receipt Date: 20130326
  Transmission Date: 20140127
  Serious: Yes (Other)
  Sender: FDA-Public Use
  Company Number: US-JNJFOC-20130108388

PATIENT
  Sex: Male

DRUGS (7)
  1. REMICADE [Suspect]
     Indication: RHEUMATOID ARTHRITIS
     Route: 042
     Dates: start: 201112, end: 20121219
  2. ARAVA [Concomitant]
     Indication: RHEUMATOID ARTHRITIS
     Route: 065
  3. LAMOTRIGINE [Concomitant]
     Indication: CONVULSION
     Route: 065
  4. OMEPRAZOLE [Concomitant]
     Indication: GASTROOESOPHAGEAL REFLUX DISEASE
     Route: 065
  5. PREDNISONE [Concomitant]
     Indication: SWELLING
     Route: 065
  6. TRAMADOL [Concomitant]
     Indication: PAIN
     Dosage: 50X4
     Route: 065
  7. METHOTREXATE [Concomitant]
     Route: 065

REACTIONS (3)
  - Pneumonia [Not Recovered/Not Resolved]
  - Lung disorder [Recovering/Resolving]
  - Immune system disorder [Recovering/Resolving]
